FAERS Safety Report 9106333 (Version 1)
Quarter: 2013Q1

REPORT INFORMATION
  Report Type: Report from Study
  Country: JP (occurrence: JP)
  Receive Date: 20130220
  Receipt Date: 20130220
  Transmission Date: 20140127
  Serious: Yes (Other)
  Sender: FDA-Public Use
  Company Number: JP-009507513-2012SP026954

PATIENT
  Age: 47 Year
  Sex: Male
  Weight: 64 kg

DRUGS (10)
  1. PEGINTERFERON ALFA-2B [Suspect]
     Indication: CHRONIC HEPATITIS C
     Dosage: 1.5 ?G/KG, QW
     Route: 058
     Dates: start: 20120316, end: 20120827
  2. REBETOL [Suspect]
     Indication: CHRONIC HEPATITIS C
     Dosage: 800 MG, QD
     Route: 048
     Dates: start: 20120316, end: 20120408
  3. REBETOL [Suspect]
     Dosage: 600 MG, QD
     Route: 048
     Dates: start: 20120409, end: 20120422
  4. REBETOL [Suspect]
     Dosage: 400 MG, QD
     Route: 048
     Dates: start: 20120423, end: 20120902
  5. TELAVIC [Suspect]
     Indication: CHRONIC HEPATITIS C
     Dosage: 2250 MG, QD
     Route: 048
     Dates: start: 20120316, end: 20120610
  6. URSO [Concomitant]
     Indication: CHRONIC HEPATITIS C
     Dosage: FORMULATION POR
     Route: 048
  7. URSO [Concomitant]
     Dosage: 300 UNK, UNK
     Route: 048
  8. ALOSITOL [Concomitant]
     Indication: HYPERURICAEMIA
     Dosage: 100 MG, QD
     Route: 048
  9. DICLOFENAC [Concomitant]
     Indication: PYREXIA
     Dosage: ROUTE ANAL
     Route: 065
     Dates: start: 20120319, end: 20120320
  10. PREDONINE [Concomitant]
     Dosage: 15 MG, QD
     Route: 048

REACTIONS (1)
  - Rash [Not Recovered/Not Resolved]
